FAERS Safety Report 4375294-1 (Version None)
Quarter: 2004Q2

REPORT INFORMATION
  Report Type: 
  Country: None (occurrence: None)
  Receive Date: 20040609
  Receipt Date: 20040603
  Transmission Date: 20050107
  Serious: Yes (Hospitalization)
  Sender: FDA-Public Use
  Company Number: 04-06-0806

PATIENT
  Age: 61 Year
  Sex: Female

DRUGS (8)
  1. METFORMIN HCL [Suspect]
     Indication: DIABETES MELLITUS NON-INSULIN-DEPENDENT
  2. ATENOLOL [Concomitant]
  3. ASPIRIN [Concomitant]
  4. CLOPIDOGREL BISULFATE [Concomitant]
  5. AMLODIPINE [Concomitant]
  6. LISINOPRIL [Concomitant]
  7. NATEGLINIDE [Concomitant]
  8. IBUPROFEN [Concomitant]

REACTIONS (9)
  - ABDOMINAL PAIN [None]
  - BLOOD PRESSURE DECREASED [None]
  - DRUG INEFFECTIVE [None]
  - DRY SKIN [None]
  - HAEMODIALYSIS [None]
  - LACTIC ACIDOSIS [None]
  - PANCREATITIS [None]
  - URINE OUTPUT DECREASED [None]
  - VOMITING [None]
